FAERS Safety Report 9417441 (Version 1)
Quarter: 2013Q3

REPORT INFORMATION
  Report Type: Spontaneous
  Country: US (occurrence: US)
  Receive Date: 20130724
  Receipt Date: 20130724
  Transmission Date: 20140515
  Serious: No
  Sender: FDA-Public Use
  Company Number: US-MYLANLABS-2012S1021789

PATIENT
  Age: 32 Year
  Sex: Male
  Weight: 78.47 kg

DRUGS (2)
  1. ZALEPLON [Suspect]
     Indication: INSOMNIA
  2. XYZAL [Concomitant]

REACTIONS (2)
  - Drug ineffective [Not Recovered/Not Resolved]
  - Insomnia [Not Recovered/Not Resolved]
